FAERS Safety Report 4406665-2 (Version None)
Quarter: 2004Q3

REPORT INFORMATION
  Report Type: 
  Country: None (occurrence: None)
  Receive Date: 20040715
  Receipt Date: 20040706
  Transmission Date: 20050211
  Serious: Yes (Death, Other)
  Sender: FDA-Public Use
  Company Number: 2004216809JP

PATIENT
  Age: 78 Year
  Sex: Male

DRUGS (5)
  1. CLINDAMYCIN HCL [Suspect]
     Dosage: IV
     Route: 042
     Dates: start: 20040528
  2. PRODIF(FOSFLUCONAZOLE) SOLUTION, STERILE [Suspect]
     Dosage: 5004.5 MG, DAILY, IV
     Route: 042
     Dates: start: 20040529
  3. MAXIPIME (CEFEPIME HYDROCHLORIDE) SOLUTION, STERILE [Suspect]
     Dosage: IV
     Route: 042
     Dates: start: 20040528
  4. DIGOXIN [Suspect]
  5. FENTANYL [Concomitant]

REACTIONS (4)
  - ALANINE AMINOTRANSFERASE INCREASED [None]
  - ASPARTATE AMINOTRANSFERASE INCREASED [None]
  - LUNG CANCER METASTATIC [None]
  - MALIGNANT NEOPLASM PROGRESSION [None]
